FAERS Safety Report 14528364 (Version 1)
Quarter: 2018Q1

REPORT INFORMATION
  Report Type: Spontaneous
  Country: SI (occurrence: SI)
  Receive Date: 20180214
  Receipt Date: 20180214
  Transmission Date: 20180509
  Serious: Yes (Life-Threatening)
  Sender: FDA-Public Use
  Company Number: SI-ASTRAZENECA-2018SE17293

PATIENT
  Age: 70 Year
  Sex: Female

DRUGS (1)
  1. FASLODEX [Suspect]
     Active Substance: FULVESTRANT
     Indication: BREAST CANCER METASTATIC
     Route: 030
     Dates: start: 20170801, end: 20171115

REACTIONS (4)
  - Atrial fibrillation [Unknown]
  - Pulmonary embolism [Unknown]
  - Fatigue [Unknown]
  - Cardiac failure [Unknown]

NARRATIVE: CASE EVENT DATE: 20171115
